FAERS Safety Report 7009530-X (Version None)
Quarter: 2010Q3

REPORT INFORMATION
  Report Type: 
  Country: None (occurrence: None)
  Receive Date: 20100923
  Receipt Date: 20100916
  Transmission Date: 20110219
  Serious: Yes (Other)
  Sender: FDA-Public Use
  Company Number: PHFR2010GB02753

PATIENT
  Sex: Male

DRUGS (13)
  1. CLOZARIL [Suspect]
     Indication: SCHIZOPHRENIA
     Dosage: UNK
     Route: 048
     Dates: start: 20060620
  2. CITALOPRAM HYDROBROMIDE [Concomitant]
     Indication: DEPRESSION
     Dosage: 40 MG, QD
     Route: 048
  3. ALENDRONATE SODIUM [Concomitant]
     Dosage: 70 MG, QW
     Route: 048
  4. OMEPRAZOLE [Concomitant]
     Indication: GASTROINTESTINAL DISORDER
     Dosage: 20 MG, QD
     Route: 048
  5. HYOSCINE HBR HYT [Concomitant]
     Dosage: 300 UG, BID
  6. ATORVASTATIN CALCIUM [Concomitant]
     Indication: HYPERCHOLESTEROLAEMIA
     Dosage: 40 MG, QD
  7. SERETIDE [Concomitant]
     Indication: CHRONIC OBSTRUCTIVE PULMONARY DISEASE
     Dosage: 1 DF, BID
  8. CALCIUM [Concomitant]
     Dosage: 1 DF, BID
  9. LEVOTHYROXINE SODIUM [Concomitant]
     Dosage: 50 UG, QD
  10. LACTULOSE [Concomitant]
     Indication: CONSTIPATION
     Dosage: 20 ML, BID
  11. NULYTELY [Concomitant]
     Indication: CONSTIPATION
  12. TAMSULOSIN HCL [Concomitant]
     Dosage: 400 UG, UNK
  13. SALBUTAMOL [Concomitant]
     Indication: ASTHMA

REACTIONS (2)
  - NEUTROPHILIA [None]
  - URINARY TRACT INFECTION [None]
